FAERS Safety Report 19747058 (Version 1)
Quarter: 2021Q3

REPORT INFORMATION
  Report Type: Spontaneous
  Country: CA (occurrence: CA)
  Receive Date: 20210826
  Receipt Date: 20210826
  Transmission Date: 20211014
  Serious: Yes (Hospitalization, Other)
  Sender: FDA-Public Use
  Company Number: CA-AMGEN-CANSP2021129460

PATIENT
  Age: 59 Year
  Sex: Female
  Weight: 85 kg

DRUGS (12)
  1. NEUPOGEN [Concomitant]
     Active Substance: FILGRASTIM
     Indication: PRODUCT USED FOR UNKNOWN INDICATION
     Dosage: UNK
     Route: 058
  2. DEXAMETHASONE. [Concomitant]
     Active Substance: DEXAMETHASONE
     Dosage: UNK
  3. ONDANSETRON [Concomitant]
     Active Substance: ONDANSETRON
     Dosage: UNK
  4. PACLITAXEL. [Concomitant]
     Active Substance: PACLITAXEL
     Dosage: UNK
  5. TRASTUZUMAB. [Concomitant]
     Active Substance: TRASTUZUMAB
     Dosage: UNK
     Route: 065
  6. CARBOPLATIN. [Concomitant]
     Active Substance: CARBOPLATIN
     Dosage: UNK
     Route: 042
  7. KANJINTI [Suspect]
     Active Substance: TRASTUZUMAB-ANNS
     Dosage: 532 MILLIGRAM, Q3WK
     Route: 041
  8. KANJINTI [Suspect]
     Active Substance: TRASTUZUMAB-ANNS
     Indication: HER2 POSITIVE BREAST CANCER
     Dosage: 87 MILLIGRAM, QWK
     Route: 041
  9. FAMOTIDINE. [Concomitant]
     Active Substance: FAMOTIDINE
     Dosage: UNK
  10. PROCHLORPERAZINE. [Concomitant]
     Active Substance: PROCHLORPERAZINE
     Dosage: UNK
  11. VITAMIN D [COLECALCIFEROL] [Concomitant]
     Active Substance: CHOLECALCIFEROL
     Dosage: UNK
  12. DIPHENHYDRAMINE. [Concomitant]
     Active Substance: DIPHENHYDRAMINE
     Dosage: UNK

REACTIONS (6)
  - Pneumonitis [Unknown]
  - Malaise [Unknown]
  - Pulmonary oedema [Unknown]
  - Pyrexia [Unknown]
  - Fatigue [Unknown]
  - Cough [Unknown]
